FAERS Safety Report 25040164 (Version 2)
Quarter: 2025Q1

REPORT INFORMATION
  Report Type: Spontaneous
  Country: US (occurrence: US)
  Receive Date: 20250305
  Receipt Date: 20250326
  Transmission Date: 20250408
  Serious: No
  Sender: LEO PHARM
  Company Number: US-LEO Pharma-378075

PATIENT
  Age: 38 Year
  Sex: Female

DRUGS (1)
  1. ADBRY [Suspect]
     Active Substance: TRALOKINUMAB-LDRM
     Indication: Dermatitis atopic
     Dosage: HAS BEEN ON ADBRY FOR 3 YEARS AND TREATMENT REPORTED AS ONGOING

REACTIONS (2)
  - Injection site erythema [Recovered/Resolved]
  - Injection site bruising [Recovered/Resolved]
